FAERS Safety Report 7114585-8 (Version None)
Quarter: 2010Q4

REPORT INFORMATION
  Report Type: 
  Country: None (occurrence: None)
  Receive Date: 20101121
  Receipt Date: 20101108
  Transmission Date: 20110411
  Serious: Yes (Hospitalization)
  Sender: FDA-Public Use
  Company Number: DE-ELI_LILLY_AND_COMPANY-DE201009001553

PATIENT
  Sex: Male
  Weight: 58 kg

DRUGS (10)
  1. FORTEO [Suspect]
     Indication: OSTEOPENIA
     Dosage: 20 UG, DAILY (1/D)
     Route: 058
     Dates: start: 20100901, end: 20100921
  2. FORTEO [Suspect]
     Dosage: 20 UG, DAILY (1/D)
     Route: 058
     Dates: start: 20101001, end: 20101010
  3. CONCOR [Concomitant]
     Indication: HYPERTENSION
     Dosage: 2.5 MG, 2/D
     Route: 048
     Dates: start: 19900101
  4. CHOLESTYRAMINE [Concomitant]
     Indication: HYPERLIPIDAEMIA
     Dosage: 4 G, UNK
     Route: 048
  5. LANSOPRAZOL [Concomitant]
     Indication: PROPHYLAXIS AGAINST GASTROINTESTINAL ULCER
     Dosage: 15 MG, DAILY (1/D)
     Route: 048
     Dates: start: 20070101
  6. ALDACTONE [Concomitant]
     Indication: HEPATIC CIRRHOSIS
     Dosage: 50 MG, DAILY (1/D)
     Dates: start: 20070101
  7. FOLSAEURE [Concomitant]
     Indication: HEPATIC CIRRHOSIS
     Dosage: 5 MG, DAILY (1/D)
     Route: 048
  8. VITAMIN B COMPLEX CAP [Concomitant]
     Indication: HEPATIC CIRRHOSIS
     Dosage: 1 D/F, DAILY (1/D)
     Route: 048
     Dates: start: 20070101
  9. VIGANTOLETTEN [Concomitant]
     Indication: OSTEOPOROTIC FRACTURE
     Dosage: 1000 IU, DAILY (1/D)
     Route: 048
     Dates: start: 20100101
  10. FALITHROM [Concomitant]
     Indication: PULMONARY EMBOLISM
     Dosage: 1.5 MG, DAILY (1/D)
     Route: 048

REACTIONS (8)
  - DECREASED APPETITE [None]
  - DEHYDRATION [None]
  - DIARRHOEA [None]
  - HEADACHE [None]
  - HYPOKALAEMIA [None]
  - NAUSEA [None]
  - VERTIGO [None]
  - VOMITING [None]
